FAERS Safety Report 9124442 (Version 2)
Quarter: 2013Q1

REPORT INFORMATION
  Report Type: Report from Study
  Country: CN (occurrence: CN)
  Receive Date: 20130227
  Receipt Date: 20130228
  Transmission Date: 20140127
  Serious: Yes (Death)
  Sender: FDA-Public Use
  Company Number: CN-ROCHE-1195609

PATIENT
  Sex: Male

DRUGS (1)
  1. CELLCEPT [Suspect]
     Indication: LIVER TRANSPLANT
     Route: 048
     Dates: start: 20110517

REACTIONS (1)
  - Death [Fatal]
